FAERS Safety Report 24318854 (Version 1)
Quarter: 2024Q3

REPORT INFORMATION
  Report Type: Spontaneous
  Country: US (occurrence: US)
  Receive Date: 20240913
  Receipt Date: 20240913
  Transmission Date: 20241017
  Serious: Yes (Life-Threatening, Hospitalization, Other)
  Sender: BRISTOL MYERS SQUIBB
  Company Number: US-BRISTOL-MYERS SQUIBB COMPANY-2024-143661

PATIENT
  Age: 80 Year
  Sex: Female
  Weight: 56.2 kg

DRUGS (14)
  1. POMALYST [Suspect]
     Active Substance: POMALIDOMIDE
     Indication: Plasma cell myeloma
     Route: 048
     Dates: start: 20240809
  2. LIDOCAINE [Concomitant]
     Active Substance: LIDOCAINE
     Indication: Pain
     Dosage: PAIN RELIEF PATCH 4%
  3. CALTRATE WITH VITAMIN D [Concomitant]
     Active Substance: CALCIUM CARBONATE\CHOLECALCIFEROL
     Dosage: 600
  4. ACYCLOVIR [Concomitant]
     Active Substance: ACYCLOVIR
  5. AMLODIPINE BESYLATE [Concomitant]
     Active Substance: AMLODIPINE BESYLATE
  6. ELIQUIS [Concomitant]
     Active Substance: APIXABAN
  7. PANTOPRAZOLE [Concomitant]
     Active Substance: PANTOPRAZOLE
  8. PREGABALIN [Concomitant]
     Active Substance: PREGABALIN
  9. CALCIUM CARBONATE [Concomitant]
     Active Substance: CALCIUM CARBONATE
  10. CLONIDINE [Concomitant]
     Active Substance: CLONIDINE
  11. DOXEPIN [Concomitant]
     Active Substance: DOXEPIN
  12. KETAMINE [Concomitant]
     Active Substance: KETAMINE
     Dosage: 100MG/ML INJ, 5ML
  13. LIDOCAINE [Concomitant]
     Active Substance: LIDOCAINE
  14. TETRACAINE [Concomitant]
     Active Substance: TETRACAINE

REACTIONS (5)
  - Fall [Unknown]
  - Spinal fracture [Unknown]
  - Skin irritation [Recovering/Resolving]
  - Erythema [Recovering/Resolving]
  - Pruritus [Recovering/Resolving]

NARRATIVE: CASE EVENT DATE: 20240812
